FAERS Safety Report 9934191 (Version 1)
Quarter: 2014Q1

REPORT INFORMATION
  Report Type: Spontaneous
  Country: US (occurrence: US)
  Receive Date: 20140228
  Receipt Date: 20140228
  Transmission Date: 20141002
  Serious: No
  Sender: FDA-Public Use
  Company Number: US-VIIV HEALTHCARE LIMITED-A1007833A

PATIENT
  Sex: 0

DRUGS (4)
  1. ZIAGEN [Suspect]
  2. TENOFOVIR [Concomitant]
  3. LAMIVIR [Concomitant]
  4. RALTEGRAVIR [Concomitant]

REACTIONS (1)
  - Drug administration error [Unknown]
